FAERS Safety Report 4598375-6 (Version None)
Quarter: 2005Q1

REPORT INFORMATION
  Report Type: 
  Country: None (occurrence: None)
  Receive Date: 20050302
  Receipt Date: 20050218
  Transmission Date: 20050727
  Serious: Yes (Death, Other)
  Sender: FDA-Public Use
  Company Number: 200421064BWH

PATIENT
  Age: 63 Year
  Sex: Female

DRUGS (1)
  1. TRASYLOL [Suspect]
     Dates: start: 20041101

REACTIONS (3)
  - CARDIAC FAILURE [None]
  - POST PROCEDURAL COMPLICATION [None]
  - THROMBOSIS [None]
